FAERS Safety Report 9193131 (Version 1)
Quarter: 2013Q1

REPORT INFORMATION
  Report Type: Spontaneous
  Country: US (occurrence: US)
  Receive Date: 20130327
  Receipt Date: 20130327
  Transmission Date: 20140127
  Serious: No
  Sender: FDA-Public Use
  Company Number: US-BAYER-2013-038350

PATIENT
  Sex: Female
  Weight: 67.12 kg

DRUGS (7)
  1. BETASERON [Suspect]
     Indication: MULTIPLE SCLEROSIS
     Dosage: UNK
     Route: 058
     Dates: start: 1994, end: 1998
  2. NAPROXEN [Concomitant]
  3. DETROL [Concomitant]
  4. ZANTAC [Concomitant]
  5. ALLEGRA [Concomitant]
  6. PROPRANOLOL [Concomitant]
  7. NEURONTIN [Concomitant]

REACTIONS (1)
  - Influenza like illness [Unknown]
